FAERS Safety Report 10097479 (Version 2)
Quarter: 2014Q2

REPORT INFORMATION
  Report Type: Spontaneous
  Country: US (occurrence: US)
  Receive Date: 20140423
  Receipt Date: 20140423
  Transmission Date: 20141212
  Serious: Yes (Hospitalization, Other)
  Sender: FDA-Public Use
  Company Number: US-AMGEN-USASP2014009902

PATIENT
  Age: 28 Year
  Sex: Female

DRUGS (27)
  1. ENBREL [Suspect]
     Indication: PSORIATIC ARTHROPATHY
     Dosage: 50 MG, QWK
     Route: 065
     Dates: start: 2001
  2. ENBREL [Suspect]
     Indication: PSORIASIS
     Dosage: UNK
     Route: 058
  3. REMICADE [Suspect]
     Indication: PRODUCT USED FOR UNKNOWN INDICATION
     Dosage: UNK
     Route: 065
  4. PLAQUENIL                          /00072602/ [Suspect]
     Indication: PRODUCT USED FOR UNKNOWN INDICATION
     Dosage: UNK
     Route: 065
  5. METHOTREXATE [Suspect]
     Indication: PRODUCT USED FOR UNKNOWN INDICATION
     Dosage: UNK
     Route: 065
  6. ATENOLOL [Concomitant]
     Dosage: UNK
  7. CLONAZEPAM [Concomitant]
     Dosage: UNK
  8. B12                                /00056201/ [Concomitant]
     Dosage: UNK
  9. DOXEPIN [Concomitant]
     Dosage: UNK
  10. FAMOTIDINE [Concomitant]
     Dosage: UNK
  11. GABAPENTIN [Concomitant]
     Dosage: UNK
  12. PREDNISONE [Concomitant]
     Dosage: UNK
  13. HYDROXYZINE [Concomitant]
     Dosage: UNK
  14. NEXIUM                             /01479302/ [Concomitant]
     Dosage: UNK
  15. NYSTATIN [Concomitant]
     Dosage: UNK
  16. OXYMORPHONE [Concomitant]
     Dosage: UNK
  17. RIZATRIPTAN [Concomitant]
     Dosage: UNK
  18. SERTRALINE [Concomitant]
     Dosage: UNK
  19. SINGULAIR [Concomitant]
     Dosage: UNK
  20. SPIRIVA [Concomitant]
     Dosage: UNK
  21. SYMBICORT [Concomitant]
     Dosage: UNK
  22. SYNTHROID [Concomitant]
     Dosage: UNK
  23. TIZANIDINE [Concomitant]
     Dosage: UNK
  24. TOPIRAMATE [Concomitant]
     Dosage: UNK
  25. WARFARIN [Concomitant]
     Dosage: UNK
  26. XOPENEX [Concomitant]
     Dosage: UNK
  27. ZYRTEC [Concomitant]
     Dosage: UNK

REACTIONS (20)
  - Infection susceptibility increased [Not Recovered/Not Resolved]
  - Urticaria [Not Recovered/Not Resolved]
  - Nephrolithiasis [Recovered/Resolved]
  - Memory impairment [Not Recovered/Not Resolved]
  - Staphylococcal infection [Recovered/Resolved]
  - Contusion [Not Recovered/Not Resolved]
  - Productive cough [Recovered/Resolved]
  - Cough [Recovered/Resolved]
  - Vomiting [Recovered/Resolved]
  - Nausea [Recovered/Resolved]
  - Dental care [Recovered/Resolved]
  - Acne [Not Recovered/Not Resolved]
  - Skin abrasion [Not Recovered/Not Resolved]
  - Injection site urticaria [Recovered/Resolved]
  - Injection site swelling [Not Recovered/Not Resolved]
  - Injection site erythema [Not Recovered/Not Resolved]
  - Injection site reaction [Not Recovered/Not Resolved]
  - Drug ineffective [Unknown]
  - Nasopharyngitis [Recovered/Resolved]
  - Upper respiratory tract infection [Recovered/Resolved]
